FAERS Safety Report 8167649-4 (Version None)
Quarter: 2012Q1

REPORT INFORMATION
  Report Type: 
  Country: None (occurrence: None)
  Receive Date: 20120227
  Receipt Date: 20120222
  Transmission Date: 20120608
  Serious: Yes (Hospitalization)
  Sender: FDA-Public Use
  Company Number: DE-ROCHE-759393

PATIENT
  Sex: Female
  Weight: 64 kg

DRUGS (5)
  1. VINORELBINE TARTRATE [Suspect]
     Indication: BREAST CANCER METASTATIC
     Dosage: FREQ: ON DAYS 1 AND 8 OF A 3 WEEK CYCLE (PER PROTOCOL)LAST DOSE PRIOR TO SAE: 6 DEC 2010
     Route: 042
  2. AVASTIN [Suspect]
     Indication: BREAST CANCER METASTATIC
     Dosage: FREQ: DAY 1 OF 3 WEEK CYCLE (PER PROTOCOL) LAST DOSE PRIOR TO SAE: 29 NOV 2010
     Route: 042
  3. METOCLOPRAMIDE [Concomitant]
     Dosage: DROPS AS REQUESTED
     Dates: start: 20101129
  4. XELODA [Suspect]
     Indication: BREAST CANCER METASTATIC
     Dosage: FREQ: ON DAYS 1-14 OF 3 WEEK CYCLE (PER PROTOCOL)LAST DOSE PRIOR TO SAE: 12 DEC 2010
     Route: 048
  5. CELLONDAN [Concomitant]
     Dosage: AS REQUESTED
     Dates: start: 20101129

REACTIONS (6)
  - GENERAL PHYSICAL HEALTH DETERIORATION [None]
  - PANCYTOPENIA [None]
  - HAEMATOCHEZIA [None]
  - NAUSEA [None]
  - VOMITING [None]
  - CONSTIPATION [None]
